FAERS Safety Report 5265869-X (Version None)
Quarter: 2007Q1

REPORT INFORMATION
  Report Type: 
  Country: None (occurrence: None)
  Receive Date: 20070312
  Receipt Date: 20070312
  Transmission Date: 20070707
  Serious: Yes (Life-Threatening, Disabling)
  Sender: FDA-Public Use
  Company Number: None

PATIENT
  Age: 74 Year
  Sex: Female
  Weight: 78.4723 kg

DRUGS (2)
  1. AVELOX [Suspect]
     Indication: BRONCHITIS
     Dosage: 1 TABLET-MG.?  ONCE A DAY BY MOUTH
     Route: 048
     Dates: start: 20070131
  2. AVELOX [Suspect]
     Indication: PNEUMONIA
     Dosage: 1 TABLET-MG.?  ONCE A DAY BY MOUTH
     Route: 048
     Dates: start: 20070131

REACTIONS (7)
  - ANAPHYLACTIC REACTION [None]
  - BURNING SENSATION [None]
  - DYSPNOEA [None]
  - DYSSTASIA [None]
  - LOSS OF CONSCIOUSNESS [None]
  - NERVE INJURY [None]
  - SKIN DISCOLOURATION [None]
